FAERS Safety Report 18337486 (Version 2)
Quarter: 2020Q4

REPORT INFORMATION
  Report Type: Spontaneous
  Country: JP (occurrence: JP)
  Receive Date: 20201002
  Receipt Date: 20201015
  Transmission Date: 20210113
  Serious: Yes (Other)
  Sender: FDA-Public Use
  Company Number: JP-SAKK-2020SA266381AA

PATIENT

DRUGS (3)
  1. DOCETAXEL. [Suspect]
     Active Substance: DOCETAXEL
     Indication: INVASIVE DUCTAL BREAST CARCINOMA
     Route: 041
  2. TRASTUZUMAB. [Concomitant]
     Active Substance: TRASTUZUMAB
     Indication: INVASIVE DUCTAL BREAST CARCINOMA
     Route: 065
  3. PERTUZUMAB. [Concomitant]
     Active Substance: PERTUZUMAB
     Indication: INVASIVE DUCTAL BREAST CARCINOMA
     Route: 065

REACTIONS (10)
  - Dizziness [Unknown]
  - Cerebellar ataxia [Unknown]
  - Secondary cerebellar degeneration [Unknown]
  - Balance disorder [Unknown]
  - Dysarthria [Unknown]
  - Nystagmus [Unknown]
  - Cerebellar atrophy [Unknown]
  - Dyslalia [Unknown]
  - Pulmonary artery thrombosis [Unknown]
  - Venous thrombosis limb [Unknown]
